FAERS Safety Report 6037541-X (Version None)
Quarter: 2009Q1

REPORT INFORMATION
  Report Type: 
  Country: None (occurrence: None)
  Receive Date: 20090114
  Receipt Date: 20090106
  Transmission Date: 20090719
  Serious: Yes (Hospitalization)
  Sender: FDA-Public Use
  Company Number: US-ELI_LILLY_AND_COMPANY-US200812003819

PATIENT
  Sex: Female
  Weight: 87.982 kg

DRUGS (7)
  1. BYETTA [Suspect]
     Indication: TYPE 2 DIABETES MELLITUS
     Dosage: 5 UG, 2/D
     Route: 058
     Dates: start: 20050101, end: 20050101
  2. BYETTA [Suspect]
     Dosage: 10 UG, 2/D
     Route: 058
     Dates: start: 20050101, end: 20050101
  3. BYETTA [Suspect]
     Dosage: 5 UG, 2/D
     Route: 058
     Dates: start: 20050101
  4. HUMULIN /00646001/ [Concomitant]
     Indication: TYPE 2 DIABETES MELLITUS
     Dates: start: 20080601, end: 20081101
  5. LANTUS [Concomitant]
     Indication: TYPE 2 DIABETES MELLITUS
     Dosage: 35 U, UNK
     Dates: start: 20080601
  6. EFFEXOR [Concomitant]
     Dosage: 150 MG, DAILY (1/D)
     Route: 048
     Dates: start: 20060101
  7. ANALGESIC [Concomitant]
     Indication: BACK PAIN

REACTIONS (4)
  - BLOOD CHOLESTEROL INCREASED [None]
  - LORDOSIS [None]
  - MYOCARDIAL INFARCTION [None]
  - NAUSEA [None]
